FAERS Safety Report 8099405-X (Version None)
Quarter: 2012Q1

REPORT INFORMATION
  Report Type: 
  Country: None (occurrence: None)
  Receive Date: 20120129
  Receipt Date: 20111004
  Transmission Date: 20120608
  Serious: Yes (Hospitalization)
  Sender: FDA-Public Use
  Company Number: US-ABBOTT-11P-163-0861514-00

PATIENT
  Age: 66 Year
  Sex: Female

DRUGS (8)
  1. VIOXX [Concomitant]
     Indication: PRODUCT USED FOR UNKNOWN INDICATION
     Dates: start: 20010101, end: 20060101
  2. NSAID'S [Concomitant]
     Indication: PRODUCT USED FOR UNKNOWN INDICATION
     Dosage: ONE TO TWO A DAY
  3. ESTROGENS CONJUGATED [Concomitant]
     Indication: HORMONE REPLACEMENT THERAPY
  4. PREDNISONE TAB [Concomitant]
     Indication: PRODUCT USED FOR UNKNOWN INDICATION
     Dates: start: 20010101, end: 20060101
  5. HUMIRA [Suspect]
     Indication: RHEUMATOID ARTHRITIS
     Dates: start: 20031001, end: 20041101
  6. LASIX [Concomitant]
     Indication: SWELLING
  7. METHOTREXATE [Concomitant]
     Indication: PRODUCT USED FOR UNKNOWN INDICATION
     Dates: start: 20010101, end: 20060101
  8. METHOTREXATE [Concomitant]
     Dates: start: 20110801

REACTIONS (9)
  - HEADACHE [None]
  - ABDOMINAL PAIN UPPER [None]
  - SINUS CONGESTION [None]
  - APPENDICITIS PERFORATED [None]
  - ARTHRALGIA [None]
  - INSOMNIA [None]
  - SINUSITIS [None]
  - INJECTION SITE REACTION [None]
  - OSTEOPOROSIS [None]
